FAERS Safety Report 9566557 (Version 1)
Quarter: 2013Q3

REPORT INFORMATION
  Report Type: Report from Study
  Country: US (occurrence: US)
  Receive Date: 20130930
  Receipt Date: 20130930
  Transmission Date: 20140515
  Serious: Yes (Hospitalization)
  Sender: FDA-Public Use
  Company Number: US-ROCHE-1281281

PATIENT
  Sex: Male
  Weight: 70.8 kg

DRUGS (8)
  1. ERIVEDGE [Suspect]
     Indication: SKIN CANCER
     Route: 065
     Dates: start: 2011
  2. COUMADIN [Suspect]
     Indication: SKIN CANCER
     Route: 065
  3. WARFARIN SODIUM [Concomitant]
     Route: 065
  4. LEXAPRO [Concomitant]
     Route: 065
  5. LIPITOR [Concomitant]
     Dosage: AT BEDTIME
     Route: 065
  6. OXYCODONE HCL [Concomitant]
     Indication: PAIN
     Dosage: TAKE 1-2 TABLETS EVERY 4-6 HRS AS NEEDED
     Route: 065
  7. MORPHINE SULFATE [Concomitant]
     Indication: PAIN
     Dosage: AS NEEDED
     Route: 065
  8. FLECAINIDE ACETATE [Concomitant]
     Route: 065

REACTIONS (6)
  - Pulmonary embolism [Unknown]
  - Alopecia [Unknown]
  - Hypogeusia [Unknown]
  - Sensory loss [Unknown]
  - Constipation [Unknown]
  - Contusion [Unknown]
